FAERS Safety Report 12738736 (Version 2)
Quarter: 2016Q3

REPORT INFORMATION
  Report Type: Spontaneous
  Country: NL (occurrence: NL)
  Receive Date: 20160912
  Receipt Date: 20160923
  Transmission Date: 20161109
  Serious: Yes (Hospitalization)
  Sender: FDA-Public Use
  Company Number: ALCN2016NL006123

PATIENT
  Age: 51 Year
  Sex: Male
  Weight: 80 kg

DRUGS (1)
  1. NEVANAC [Suspect]
     Active Substance: NEPAFENAC
     Indication: LASER THERAPY
     Dosage: 1 GTT, QD
     Route: 047
     Dates: start: 20151120, end: 20151220

REACTIONS (1)
  - Corneal perforation [Recovered/Resolved with Sequelae]

NARRATIVE: CASE EVENT DATE: 20151229
